FAERS Safety Report 8821604 (Version 1)
Quarter: 2012Q4

REPORT INFORMATION
  Report Type: 
  Country: IT (occurrence: IT)
  Receive Date: 20121002
  Receipt Date: 20121002
  Transmission Date: 20130627
  Serious: Yes (Hospitalization)
  Sender: FDA-Public Use
  Company Number: IT-009507513-2012SP020793

PATIENT
  Age: 70 Year
  Sex: Female

DRUGS (9)
  1. REBETOL [Suspect]
     Indication: HEPATITIS C
     Dosage: 800 mg, QD
     Route: 048
     Dates: start: 20120217, end: 20120329
  2. REBETOL [Suspect]
     Dosage: 600 mg, QD
     Route: 048
     Dates: start: 20120330
  3. PEGASYS [Suspect]
     Indication: HEPATITIS C
     Dosage: 180 ?g, QW
     Route: 058
     Dates: start: 20120217
  4. TRIATEC (RAMIPRIL) [Concomitant]
     Indication: PRODUCT USED FOR UNKNOWN INDICATION
     Dosage: 2.5 mg, QD
     Route: 048
  5. DIBASE [Concomitant]
     Indication: PRODUCT USED FOR UNKNOWN INDICATION
     Dosage: 35 DROPS WEEKLY (EVERY SUNDAY)
     Route: 065
  6. ALENDRONATE SODIUM [Concomitant]
     Indication: PRODUCT USED FOR UNKNOWN INDICATION
     Dosage: ACTAVIS
     Route: 048
  7. CALCIUM CARBONATE [Concomitant]
     Indication: PRODUCT USED FOR UNKNOWN INDICATION
     Dosage: 1 g, QD
     Route: 048
  8. GRANULOKINE [Concomitant]
     Indication: PRODUCT USED FOR UNKNOWN INDICATION
     Dosage: UPDATE (10MAY2012): 2 VIALS OF GRANULOKINE PRE FILLED INJECTION SOLUTION WAS GIVEN WEEKLY
     Route: 065
  9. EPOETIN BETA [Concomitant]
     Dosage: UPDATE (10MAY2012): 10000 IU INJECTION SOLUTION OF NEORECOERMON (TRADE NAME) WAS GIVEN WEEKLY.
     Route: 065

REACTIONS (1)
  - Pneumonitis [Recovered/Resolved]
